FAERS Safety Report 15733223 (Version 1)
Quarter: 2018Q4

REPORT INFORMATION
  Report Type: Spontaneous
  Country: US (occurrence: US)
  Receive Date: 20181218
  Receipt Date: 20181218
  Transmission Date: 20190205
  Serious: No
  Sender: FDA-Public Use
  Company Number: US-009507513-1811USA011703

PATIENT
  Age: 19 Year
  Sex: Female
  Weight: 63.49 kg

DRUGS (1)
  1. NEXPLANON [Suspect]
     Active Substance: ETONOGESTREL
     Indication: DYSMENORRHOEA
     Dosage: 68 MILLIGRAM, 1 ROD, LEFT ARM
     Route: 059
     Dates: start: 201808

REACTIONS (3)
  - Device kink [Not Recovered/Not Resolved]
  - Device deployment issue [Not Recovered/Not Resolved]
  - Product use in unapproved indication [Unknown]

NARRATIVE: CASE EVENT DATE: 2018
